FAERS Safety Report 17203094 (Version 1)
Quarter: 2019Q4

REPORT INFORMATION
  Report Type: Spontaneous
  Country: US (occurrence: US)
  Receive Date: 20191226
  Receipt Date: 20191226
  Transmission Date: 20200122
  Serious: No
  Sender: FDA-Public Use
  Company Number: US-AMGEN-USASP2019212281

PATIENT
  Sex: Male

DRUGS (4)
  1. ELIDEL [Concomitant]
     Active Substance: PIMECROLIMUS
     Dosage: UNK
  2. ENBREL [Suspect]
     Active Substance: ETANERCEPT
     Indication: PSORIASIS
     Dosage: 25 MILLIGRAM, QWK
     Route: 058
  3. FLUOCINOLONE [Concomitant]
     Active Substance: FLUOCINOLONE
     Dosage: UNK
  4. BETAMETASON [BETAMETHASONE] [Concomitant]
     Dosage: UNK

REACTIONS (1)
  - Product dose omission [Unknown]
